FAERS Safety Report 8275291-X (Version None)
Quarter: 2012Q2

REPORT INFORMATION
  Report Type: 
  Country: None (occurrence: None)
  Receive Date: 20120411
  Receipt Date: 20120406
  Transmission Date: 20120825
  Serious: Yes (Other)
  Sender: FDA-Public Use
  Company Number: US-PFIZER INC-2012047463

PATIENT
  Sex: Female
  Weight: 113 kg

DRUGS (3)
  1. EFFEXOR XR [Suspect]
     Indication: ANXIETY
     Dosage: 75 MG, DAILY
  2. EFFEXOR XR [Suspect]
     Dosage: 150 MG, DAILY
  3. TENORMIN [Concomitant]
     Indication: BLOOD PRESSURE ABNORMAL
     Dosage: 100 MG, DAILY

REACTIONS (5)
  - DIZZINESS [None]
  - WEIGHT INCREASED [None]
  - ANXIETY [None]
  - UNEVALUABLE EVENT [None]
  - WITHDRAWAL SYNDROME [None]
